FAERS Safety Report 13995216 (Version 2)
Quarter: 2017Q4

REPORT INFORMATION
  Report Type: Report from Study
  Country: ES (occurrence: ES)
  Receive Date: 20170921
  Receipt Date: 20171003
  Transmission Date: 20180321
  Serious: No
  Sender: FDA-Public Use
  Company Number: ES-TAKEDA-2017TUS019358

PATIENT
  Age: 33 Year
  Sex: Male
  Weight: 74 kg

DRUGS (9)
  1. PARACETAMOL [Concomitant]
     Active Substance: ACETAMINOPHEN
     Dosage: UNK
  2. BUSCAPINA [Concomitant]
     Active Substance: BUTYLSCOPOLAMINE BROMIDE
     Dosage: UNK
     Dates: start: 201708
  3. OMEPRAZOLE. [Concomitant]
     Active Substance: OMEPRAZOLE
     Dosage: UNK
  4. VEDOLIZUMAB [Suspect]
     Active Substance: VEDOLIZUMAB
     Indication: COLITIS ULCERATIVE
     Dosage: 300 MG, UNK
     Route: 042
     Dates: start: 20170830
  5. VEDOLIZUMAB [Suspect]
     Active Substance: VEDOLIZUMAB
     Dosage: 300 MG, Q4WEEKS
  6. METHOTREXATE. [Concomitant]
     Active Substance: METHOTREXATE
     Dosage: UNK
  7. ORFIDAL [Concomitant]
     Active Substance: LORAZEPAM
     Dosage: UNK, QD
  8. NOLOTIL /00473101/ [Concomitant]
     Active Substance: METAMIZOLE\PROPOXYPHENE
     Indication: PAIN
     Dosage: UNK
  9. URBASON                            /00049601/ [Concomitant]
     Active Substance: METHYLPREDNISOLONE
     Dosage: 16 MG, TID

REACTIONS (2)
  - Pyrexia [Not Recovered/Not Resolved]
  - Blood pressure decreased [Unknown]

NARRATIVE: CASE EVENT DATE: 20170914
